FAERS Safety Report 6688589-3 (Version None)
Quarter: 2010Q2

REPORT INFORMATION
  Report Type: 
  Country: None (occurrence: None)
  Receive Date: 20100420
  Receipt Date: 20100409
  Transmission Date: 20101027
  Serious: Yes (Hospitalization)
  Sender: FDA-Public Use
  Company Number: GB-PFIZER INC-2010027164

PATIENT
  Age: 62 Year
  Sex: Male
  Weight: 95 kg

DRUGS (8)
  1. DALACIN [Suspect]
     Indication: FOLLICULITIS
     Dosage: TWICE DAILY
     Route: 061
     Dates: start: 20090507
  2. DALACIN [Suspect]
     Dosage: ONCE DAILY
     Route: 061
  3. IRBESARTAN [Concomitant]
     Indication: BLOOD PRESSURE
     Dosage: 150 MG, 1X/DAY
     Route: 048
     Dates: start: 20040201
  4. AMLODIPINE [Concomitant]
     Indication: BLOOD PRESSURE
     Dosage: 5 MG, 1X/DAY
  5. TIMOLOL [Concomitant]
     Indication: GLAUCOMA
     Dosage: 0.25 UNK, 1X/DAY
     Route: 048
  6. PROPRANOLOL [Concomitant]
     Indication: BLOOD PRESSURE
     Dosage: 10 MG, UNK
     Route: 048
  7. PROPRANOLOL [Concomitant]
     Dosage: 40 MG, UNK
     Route: 048
  8. PROPRANOLOL [Concomitant]
     Dosage: 60 MG, DAILY

REACTIONS (8)
  - ABDOMINAL PAIN [None]
  - BURNING SENSATION [None]
  - DIARRHOEA [None]
  - FLATULENCE [None]
  - HAEMATOCHEZIA [None]
  - INCORRECT DOSE ADMINISTERED [None]
  - IRRITABLE BOWEL SYNDROME [None]
  - PRURITUS [None]
